FAERS Safety Report 25391027 (Version 1)
Quarter: 2025Q2

REPORT INFORMATION
  Report Type: Spontaneous
  Country: US (occurrence: US)
  Receive Date: 20250603
  Receipt Date: 20250603
  Transmission Date: 20250716
  Serious: No
  Sender: DENDREON PHARMACEUTICALS LLC
  Company Number: US-DENDREON PHARMACEUTICAL LLC-2024DEN000210

PATIENT

DRUGS (11)
  1. PROVENGE [Suspect]
     Active Substance: SIPULEUCEL-T
     Indication: Prostate cancer metastatic
     Route: 042
     Dates: start: 20240712, end: 20240712
  2. PROVENGE [Suspect]
     Active Substance: SIPULEUCEL-T
     Route: 042
     Dates: start: 20240726, end: 20240726
  3. LISINOPRIL [Concomitant]
     Active Substance: LISINOPRIL
     Indication: Hypertension
     Route: 065
  4. GABAPENTIN [Concomitant]
     Active Substance: GABAPENTIN
     Indication: Neuropathy peripheral
  5. PROTONIX [Concomitant]
     Active Substance: PANTOPRAZOLE SODIUM
     Indication: Product used for unknown indication
     Route: 065
  6. FLOMAX [Concomitant]
     Active Substance: TAMSULOSIN HYDROCHLORIDE
     Indication: Product used for unknown indication
     Route: 065
  7. TYLENOL [Concomitant]
     Active Substance: ACETAMINOPHEN
     Indication: Premedication
     Route: 048
     Dates: start: 20240726, end: 20240726
  8. BENADRYL [Concomitant]
     Active Substance: DIPHENHYDRAMINE HYDROCHLORIDE
     Indication: Premedication
     Route: 042
     Dates: start: 20240726, end: 20240726
  9. ZYRTEC [Concomitant]
     Active Substance: CETIRIZINE HYDROCHLORIDE
     Indication: Premedication
     Route: 048
     Dates: start: 20240726, end: 20240726
  10. PEPCID [Concomitant]
     Active Substance: FAMOTIDINE
     Indication: Premedication
     Route: 048
     Dates: start: 20240726, end: 20240726
  11. TRAMADOL [Concomitant]
     Active Substance: TRAMADOL
     Indication: Premedication
     Route: 048
     Dates: start: 20240726, end: 20240726

REACTIONS (10)
  - Chills [Recovered/Resolved]
  - Chills [Recovered/Resolved]
  - Oxygen saturation decreased [Recovered/Resolved]
  - Heart rate increased [Recovered/Resolved]
  - Vomiting [Recovered/Resolved]
  - Dizziness [Recovered/Resolved]
  - Abdominal discomfort [Recovered/Resolved]
  - Arthralgia [Recovered/Resolved]
  - Musculoskeletal stiffness [Recovered/Resolved]
  - Blood pressure increased [Recovered/Resolved]

NARRATIVE: CASE EVENT DATE: 20240726
